FAERS Safety Report 6037377-X (Version None)
Quarter: 2009Q1

REPORT INFORMATION
  Report Type: 
  Country: None (occurrence: None)
  Receive Date: 20090114
  Receipt Date: 20090112
  Transmission Date: 20090719
  Serious: Yes (Other)
  Sender: FDA-Public Use
  Company Number: GR-PFIZER INC-2009154083

PATIENT

DRUGS (3)
  1. CELEBREX [Suspect]
     Indication: OSTEOARTHRITIS
     Dosage: 200 MG, UNK
     Dates: start: 20090101
  2. ANTIHYPERTENSIVES [Concomitant]
     Route: 048
  3. SIMVASTATIN [Concomitant]
     Route: 048

REACTIONS (2)
  - CONTUSION [None]
  - DERMATITIS ALLERGIC [None]
